FAERS Safety Report 4883919-7 (Version None)
Quarter: 2006Q1

REPORT INFORMATION
  Report Type: 
  Country: None (occurrence: None)
  Receive Date: 20060113
  Receipt Date: 20051229
  Transmission Date: 20060701
  Serious: Yes (Other)
  Sender: FDA-Public Use
  Company Number: GB200601000310

PATIENT
  Sex: Female

DRUGS (1)
  1. SOMATROPIN(SOMATROPIN UNKNOWN FORMULATION) UNKNOWN [Suspect]

REACTIONS (2)
  - EPENDYMOMA [None]
  - MENINGIOMA [None]
